FAERS Safety Report 6732689-6 (Version None)
Quarter: 2010Q2

REPORT INFORMATION
  Report Type: 
  Country: None (occurrence: None)
  Receive Date: 20100519
  Receipt Date: 20091223
  Transmission Date: 20101027
  Serious: No
  Sender: FDA-Public Use
  Company Number: US-BRISTOL-MYERS SQUIBB COMPANY-14908826

PATIENT
  Age: 73 Year
  Sex: Male
  Weight: 65 kg

DRUGS (3)
  1. BARACLUDE [Suspect]
     Indication: HEPATITIS B
     Dosage: STARTED ON 05DEC09 AT A DOSE OF 0.5MG/D AND 1MG FROM 22DEC09
     Dates: start: 20091205
  2. DALMANE [Concomitant]
  3. PREVACID [Concomitant]

REACTIONS (1)
  - NECK PAIN [None]
